FAERS Safety Report 24248786 (Version 1)
Quarter: 2024Q3

REPORT INFORMATION
  Report Type: Spontaneous
  Country: ES (occurrence: ES)
  Receive Date: 20240826
  Receipt Date: 20240826
  Transmission Date: 20241017
  Serious: Yes (Other)
  Sender: CHEPLAPHARM
  Company Number: None

PATIENT
  Age: 81 Year
  Sex: Female

DRUGS (19)
  1. CLONAZEPAM [Suspect]
     Active Substance: CLONAZEPAM
     Indication: Back pain
     Dosage: ORAL DROPS IN SOLUTION, 1 BOTTLE OF 10 ML?DAILY DOSE: 4 DROP
     Route: 048
     Dates: start: 20240524, end: 20240524
  2. Serc [Concomitant]
     Dosage: 8MG/8H?DAILY DOSE: 24 MILLIGRAM
  3. SACUBITRIL\VALSARTAN [Concomitant]
     Active Substance: SACUBITRIL\VALSARTAN
     Dosage: 24/26MG 1C/24H?DAILY DOSE: 1 DOSAGE FORM
  4. CALCIFEDIOL [Concomitant]
     Active Substance: CALCIFEDIOL
     Dosage: 0.266MG 1 CAPSULE/15 DAYS
  5. Furosemide Alter [Concomitant]
     Dosage: 1C/24H?DAILY DOSE: 1 DOSAGE FORM
  6. ELIQUIS [Concomitant]
     Active Substance: APIXABAN
     Dosage: 5MG 1C/12H?DAILY DOSE: 10 MILLIGRAM
  7. DAPAGLIFLOZIN [Concomitant]
     Active Substance: DAPAGLIFLOZIN
     Dosage: 10MG 1C/24H?DAILY DOSE: 10 MILLIGRAM
  8. HYDROXYCHLOROQUINE SULFATE [Concomitant]
     Active Substance: HYDROXYCHLOROQUINE SULFATE
     Dosage: 200MG 1C/24H?DAILY DOSE: 200 MILLIGRAM
  9. ALDACTONE [Concomitant]
     Active Substance: SPIRONOLACTONE
     Dosage: 25MG 1C/24H?DAILY DOSE: 25 MILLIGRAM
  10. ALENDRONIC ACID [Concomitant]
     Active Substance: ALENDRONIC ACID
     Dosage: WEEKLY
  11. FOLIC ACID [Concomitant]
     Active Substance: FOLIC ACID
     Dosage: 5MG 1C/24H?DAILY DOSE: 5 MILLIGRAM
  12. ACETAMINOPHEN [Concomitant]
     Active Substance: ACETAMINOPHEN
     Dosage: 500MG 1C/8H ?DAILY DOSE: 1500 MILLIGRAM
  13. METHYLPREDNISOLONE [Concomitant]
     Active Substance: METHYLPREDNISOLONE
     Dosage: 4MG 1C/24H?DAILY DOSE: 4 MILLIGRAM
  14. ACETAMINOPHEN\TRAMADOL [Concomitant]
     Active Substance: ACETAMINOPHEN\TRAMADOL
     Dosage: 37.5/325MG 1C/12H?DAILY DOSE: 2 DOSAGE FORM
  15. METHOTREXATE [Concomitant]
     Active Substance: METHOTREXATE
  16. CALCIUM CARBONATE\CHOLECALCIFEROL [Concomitant]
     Active Substance: CALCIUM CARBONATE\CHOLECALCIFEROL
     Dosage: 500MG/400UI 1C/24H?DAILY DOSE: 1 DOSAGE FORM
  17. Micralax Citrate/lauryl Sulfoacetate [Concomitant]
  18. ENEMA (SODIUM PHOSPHATE, DIBASIC\SODIUM PHOSPHATE, MONOBASIC) [Concomitant]
     Active Substance: SODIUM PHOSPHATE, DIBASIC\SODIUM PHOSPHATE, MONOBASIC
     Dosage: EVERY 24H
  19. Normon [Concomitant]

REACTIONS (2)
  - Oedema mouth [Recovered/Resolved]
  - Off label use [Recovered/Resolved]

NARRATIVE: CASE EVENT DATE: 20240524
